FAERS Safety Report 4479161-4 (Version None)
Quarter: 2004Q4

REPORT INFORMATION
  Report Type: 
  Country: None (occurrence: None)
  Receive Date: 20040923
  Receipt Date: 20040610
  Transmission Date: 20050328
  Serious: No
  Sender: FDA-Public Use
  Company Number: USA040669003

PATIENT
  Age: 50 Year
  Sex: Female

DRUGS (3)
  1. FORTEO [Suspect]
     Indication: OSTEOPOROSIS
     Dates: start: 20040518, end: 20040529
  2. EVISTA [Suspect]
     Indication: OSTEOPOROSIS
     Dates: end: 20040101
  3. TAPAZOLE [Concomitant]

REACTIONS (3)
  - HEART RATE INCREASED [None]
  - NAUSEA [None]
  - WEIGHT DECREASED [None]
